FAERS Safety Report 23955159 (Version 2)
Quarter: 2024Q3

REPORT INFORMATION
  Report Type: Report from Study
  Country: US (occurrence: US)
  Receive Date: 20240610
  Receipt Date: 20240809
  Transmission Date: 20241016
  Serious: Yes (Other)
  Sender: JOHNSON AND JOHNSON
  Company Number: US-JNJFOC-20240616213

PATIENT
  Age: 86 Year
  Sex: Male

DRUGS (33)
  1. ERLEADA [Suspect]
     Active Substance: APALUTAMIDE
     Indication: Prostate cancer
     Route: 048
  2. ASPIRIN [Concomitant]
     Active Substance: ASPIRIN
     Indication: Product used for unknown indication
  3. ELIGARD [Concomitant]
     Active Substance: LEUPROLIDE ACETATE
     Indication: Product used for unknown indication
  4. FISH OIL [Concomitant]
     Active Substance: FISH OIL
     Indication: Product used for unknown indication
  5. GRAPE SEED EXTRACT [VITIS VINIFERA SEED] [Concomitant]
     Indication: Product used for unknown indication
  6. LISINOPRIL [Concomitant]
     Active Substance: LISINOPRIL
     Indication: Product used for unknown indication
  7. METHYLPREDNISOLONE [Concomitant]
     Active Substance: METHYLPREDNISOLONE
     Indication: Product used for unknown indication
  8. MULTI VITAMIN [ASCORBIC ACID;COLECALCIFEROL;NICOTINAMIDE;PANTHENOL;PYR [Concomitant]
     Indication: Product used for unknown indication
  9. ROSUVASTATIN [Concomitant]
     Active Substance: ROSUVASTATIN\ROSUVASTATIN CALCIUM
     Indication: Product used for unknown indication
  10. SHARK CARTILAGE [Concomitant]
     Active Substance: SHARK CARTILAGE\SHARK, UNSPECIFIED
     Indication: Product used for unknown indication
  11. XTANDI [Concomitant]
     Active Substance: ENZALUTAMIDE
     Indication: Product used for unknown indication
  12. METOPROLOL SUCCINATE [Concomitant]
     Active Substance: METOPROLOL SUCCINATE
     Indication: Hypertension
     Route: 048
  13. LIDOCAINE [Concomitant]
     Active Substance: LIDOCAINE
  14. HYALURONATE SODIUM [Concomitant]
     Active Substance: HYALURONATE SODIUM
  15. ASPERCREME PAIN RELIEVING [Concomitant]
     Active Substance: TROLAMINE SALICYLATE
  16. LIDOCAINE [Concomitant]
     Active Substance: LIDOCAINE
  17. LUPRON [Concomitant]
     Active Substance: LEUPROLIDE ACETATE
  18. OSTEO BI-FLEX [CHONDROITIN SULFATE;GLUCOSAMINE HYDROCHLORIDE] [Concomitant]
  19. GINKGO [Concomitant]
     Active Substance: GINKGO
  20. HERBALS\SAW PALMETTO [Concomitant]
     Active Substance: HERBALS\SAW PALMETTO
  21. ASCORBIC ACID [Concomitant]
     Active Substance: ASCORBIC ACID
  22. SELENIUM [Concomitant]
     Active Substance: SELENIUM
  23. VITAMIN B COMPLEX [Concomitant]
     Active Substance: CYANOCOBALAMIN\DEXPANTHENOL\NIACINAMIDE\PYRIDOXINE HYDROCHLORIDE\RIBOFLAVIN 5^-PHOSPHATE SODIUM\THIA
  24. B-12 NATURE MADE [Concomitant]
  25. CALCIUM [Concomitant]
     Active Substance: CALCIUM
  26. MAGNESIUM [Concomitant]
     Active Substance: MAGNESIUM
  27. ZINC [Concomitant]
     Active Substance: ZINC
  28. CRANBERRY [Concomitant]
     Active Substance: CRANBERRY
  29. POTASSIUM [Concomitant]
     Active Substance: POTASSIUM
  30. VITAMIN D3 [Concomitant]
     Active Substance: CHOLECALCIFEROL
  31. SHARK CARTILAGE [Concomitant]
     Active Substance: SHARK CARTILAGE\SHARK, UNSPECIFIED
  32. Q-10 CO-ENZYME [Concomitant]
  33. GRAPE SEED EXTRACT [VITIS VINIFERA SEED] [Concomitant]

REACTIONS (2)
  - Product dose omission issue [Unknown]
  - Muscle spasms [Unknown]
